FAERS Safety Report 6342384-3 (Version None)
Quarter: 2009Q3

REPORT INFORMATION
  Report Type: 
  Country: None (occurrence: None)
  Receive Date: 20090908
  Receipt Date: 20090813
  Transmission Date: 20100115
  Serious: No
  Sender: FDA-Public Use
  Company Number: A0790145A

PATIENT
  Age: 5 Year
  Sex: Female

DRUGS (2)
  1. CEFTIN [Suspect]
     Indication: DRUG USE FOR UNKNOWN INDICATION
     Dosage: 1TSP TWICE PER DAY
     Route: 048
     Dates: start: 20090602
  2. NO CONCURRENT MEDICATION [Concomitant]

REACTIONS (3)
  - DYSPHAGIA [None]
  - PRODUCT QUALITY ISSUE [None]
  - RETCHING [None]
